FAERS Safety Report 6121999-1 (Version None)
Quarter: 2009Q1

REPORT INFORMATION
  Report Type: 
  Country: None (occurrence: None)
  Receive Date: 20090316
  Receipt Date: 20090305
  Transmission Date: 20090719
  Serious: Yes (Hospitalization)
  Sender: FDA-Public Use
  Company Number: 1022556-2009-00015

PATIENT
  Sex: Male

DRUGS (6)
  1. ACT TOTAL CARE MOUTHWASH [Suspect]
     Indication: DENTAL DISORDER PROPHYLAXIS
     Dosage: 10 ML, BID, PO
     Route: 048
     Dates: start: 20090126
  2. ACT TOTAL CARE MOUTHWASH [Suspect]
     Indication: INVESTIGATION
     Dosage: 10 ML, BID, PO
     Route: 048
     Dates: start: 20090126
  3. PRILOSEC [Concomitant]
  4. VYTORIN [Concomitant]
  5. FLOMAX [Concomitant]
  6. HYDROCODONE BITARTRATE + ACETAMINOPHEN [Concomitant]

REACTIONS (1)
  - PROSTATE CANCER [None]
